FAERS Safety Report 22003286 (Version 1)
Quarter: 2023Q1

REPORT INFORMATION
  Report Type: Spontaneous
  Country: IT (occurrence: IT)
  Receive Date: 20230217
  Receipt Date: 20230217
  Transmission Date: 20230418
  Serious: Yes (Hospitalization)
  Sender: FDA-Public Use
  Company Number: None

PATIENT
  Age: 69 Year
  Sex: Male

DRUGS (6)
  1. AJOVY [Suspect]
     Active Substance: FREMANEZUMAB-VFRM
     Indication: Migraine without aura
     Dosage: 225 MG 1 FL PER MONTH; THE PREVIOUS CYCLE WAS DONE FROM 14.5.20 TO 11.5.21.
     Dates: start: 20220117, end: 20221202
  2. FOLINA [Concomitant]
     Indication: Congenital hypercoagulation
  3. ASPIRIN [Concomitant]
     Active Substance: ASPIRIN
     Indication: Product used for unknown indication
  4. ESCITALOPRAM OXALATE [Concomitant]
     Active Substance: ESCITALOPRAM OXALATE
     Indication: Mixed anxiety and depressive disorder
     Dosage: 10 MILLIGRAM DAILY; 10 MG/DAY
  5. HUMAN BLOOD VESSEL [Concomitant]
     Active Substance: HUMAN BLOOD VESSEL
     Indication: Product used for unknown indication
     Dosage: 250 IU (INTERNATIONAL UNIT) DAILY; 250 IU 1 TABLET/DAY
  6. AMLODIPINE BESYLATE\PERINDOPRIL ARGININE [Concomitant]
     Active Substance: AMLODIPINE BESYLATE\PERINDOPRIL ARGININE
     Indication: Hypertension
     Dosage: 1 DOSAGE FORMS DAILY; 10/5 MG 1 CP/DAY

REACTIONS (3)
  - Deep vein thrombosis [Recovered/Resolved]
  - Pulmonary embolism [Recovered/Resolved]
  - Pain in extremity [Not Recovered/Not Resolved]

NARRATIVE: CASE EVENT DATE: 20230106
